FAERS Safety Report 9264187 (Version 1)
Quarter: 2013Q2

REPORT INFORMATION
  Report Type: Spontaneous
  Country: GB (occurrence: GB)
  Receive Date: 20130430
  Receipt Date: 20130430
  Transmission Date: 20140414
  Serious: Yes (Other)
  Sender: FDA-Public Use
  Company Number: GB-PFIZER INC-2013129355

PATIENT
  Sex: 0

DRUGS (1)
  1. LINEZOLID [Suspect]
     Indication: DIABETIC FOOT INFECTION

REACTIONS (2)
  - Renal impairment [Unknown]
  - Haemoglobin decreased [Unknown]
